FAERS Safety Report 7170559-2 (Version None)
Quarter: 2010Q4

REPORT INFORMATION
  Report Type: 
  Country: None (occurrence: None)
  Receive Date: 20101214
  Receipt Date: 20101214
  Transmission Date: 20110411
  Serious: Yes (Other)
  Sender: FDA-Public Use
  Company Number: None

PATIENT
  Age: 63 Year
  Sex: Female
  Weight: 74.8435 kg

DRUGS (3)
  1. JANUVIA [Suspect]
     Indication: DIABETES MELLITUS
     Dosage: 100 MG DAILY PO
     Route: 048
     Dates: start: 20090601, end: 20101210
  2. METFORMIN 500MG GENERIC [Suspect]
     Indication: DIABETES MELLITUS
     Dosage: TWICE A DAY PO
     Route: 048
     Dates: start: 20090601, end: 20101110
  3. QUINAPRIL [Concomitant]

REACTIONS (3)
  - DISEASE RECURRENCE [None]
  - RASH PRURITIC [None]
  - RHINORRHOEA [None]
